FAERS Safety Report 8841675 (Version 1)
Quarter: 2012Q4

REPORT INFORMATION
  Report Type: 
  Country: US (occurrence: US)
  Receive Date: 20121015
  Receipt Date: 20121015
  Transmission Date: 20130627
  Serious: No
  Sender: FDA-Public Use
  Company Number: US-PFIZER INC-2012251989

PATIENT
  Age: 38 Year
  Sex: Female
  Weight: 63.49 kg

DRUGS (4)
  1. LYRICA [Suspect]
     Indication: SPINAL CORD DISORDER
     Dosage: 150 mg, 3x/day
     Route: 048
     Dates: start: 201112
  2. LYRICA [Suspect]
     Dosage: 150 mg, 2x/day
     Route: 048
     Dates: start: 20121004
  3. SYNTHROID [Concomitant]
     Indication: HYPOTHYROIDISM
     Dosage: 100 ug, daily
  4. CYMBALTA [Concomitant]
     Indication: FIBROMYALGIA
     Dosage: 30 mg, daily

REACTIONS (2)
  - Drug ineffective [Unknown]
  - Night sweats [Not Recovered/Not Resolved]
